FAERS Safety Report 7499602-8 (Version None)
Quarter: 2011Q2

REPORT INFORMATION
  Report Type: 
  Country: None (occurrence: None)
  Receive Date: 20110517
  Receipt Date: 20110425
  Transmission Date: 20111010
  Serious: Yes (Death, Hospitalization, Other)
  Sender: FDA-Public Use
  Company Number: 2011PROUSA00269

PATIENT
  Age: 67 Year
  Sex: Male
  Weight: 88 kg

DRUGS (7)
  1. PROVENGE [Suspect]
     Indication: PROSTATE CANCER METASTATIC
     Dosage: 250 ML, SINGLE, INTRAVENOUS
     Route: 042
     Dates: start: 20110324, end: 20110324
  2. RITALIN [Concomitant]
  3. BENADRYL [Concomitant]
  4. MORPHINE [Concomitant]
  5. FAMOTIDIE (FAMOTIDINE) [Concomitant]
  6. ACETAMINOPHEN [Concomitant]
  7. BICALUTAMIDE [Concomitant]

REACTIONS (10)
  - METASTASES TO LIVER [None]
  - PERFORMANCE STATUS DECREASED [None]
  - HEPATIC FAILURE [None]
  - DISEASE PROGRESSION [None]
  - AGITATION [None]
  - DEHYDRATION [None]
  - PROSTATE CANCER METASTATIC [None]
  - CONFUSIONAL STATE [None]
  - HYPOCALCAEMIA [None]
  - ANAEMIA [None]
